FAERS Safety Report 24134101 (Version 1)
Quarter: 2024Q3

REPORT INFORMATION
  Report Type: Spontaneous
  Country: JP (occurrence: JP)
  Receive Date: 20240724
  Receipt Date: 20240724
  Transmission Date: 20241017
  Serious: Yes (Life-Threatening, Other)
  Sender: BRISTOL MYERS SQUIBB
  Company Number: JP-BRISTOL-MYERS SQUIBB COMPANY-2024-114945

PATIENT
  Age: 60 Year
  Sex: Female

DRUGS (2)
  1. YERVOY [Suspect]
     Active Substance: IPILIMUMAB
     Indication: Non-small cell lung cancer
     Route: 041
  2. OPDIVO [Suspect]
     Active Substance: NIVOLUMAB
     Indication: Non-small cell lung cancer

REACTIONS (6)
  - Hypothyroidism [Unknown]
  - Myocarditis [Unknown]
  - Loss of consciousness [Unknown]
  - Cardiac arrest [Unknown]
  - Shock [Unknown]
  - Electrocardiogram QRS complex prolonged [Unknown]
